FAERS Safety Report 15375132 (Version 4)
Quarter: 2019Q1

REPORT INFORMATION
  Report Type: Spontaneous
  Country: US (occurrence: US)
  Receive Date: 20180912
  Receipt Date: 20190116
  Transmission Date: 20190417
  Serious: Yes (Hospitalization, Other)
  Sender: FDA-Public Use
  Company Number: US-OTSUKA-2018_025542

PATIENT
  Age: 61 Year
  Sex: Male

DRUGS (13)
  1. ABILIFY [Suspect]
     Active Substance: ARIPIPRAZOLE
     Indication: MAJOR DEPRESSION
     Dosage: 5 MG, QAM
     Route: 048
     Dates: start: 20121217, end: 20130524
  2. ABILIFY [Suspect]
     Active Substance: ARIPIPRAZOLE
     Indication: POST-TRAUMATIC STRESS DISORDER
  3. ABILIFY [Suspect]
     Active Substance: ARIPIPRAZOLE
     Indication: SOCIAL ANXIETY DISORDER
  4. AMBIEN [Concomitant]
     Active Substance: ZOLPIDEM TARTRATE
     Indication: INSOMNIA
     Dosage: 10 MG QHS
     Route: 048
  5. ABILIFY [Suspect]
     Active Substance: ARIPIPRAZOLE
     Indication: ANXIETY
  6. ABILIFY [Suspect]
     Active Substance: ARIPIPRAZOLE
     Indication: ATTENTION DEFICIT/HYPERACTIVITY DISORDER
  7. EFFEXOR [Concomitant]
     Active Substance: VENLAFAXINE HYDROCHLORIDE
     Indication: PRODUCT USED FOR UNKNOWN INDICATION
     Dosage: 225 MG, QD
     Route: 048
  8. CLONAZEPAM. [Concomitant]
     Active Substance: CLONAZEPAM
     Indication: ANXIETY
     Dosage: 1 MG, BID
     Route: 065
  9. ABILIFY [Suspect]
     Active Substance: ARIPIPRAZOLE
     Indication: AGITATION
  10. ABILIFY [Suspect]
     Active Substance: ARIPIPRAZOLE
     Indication: IRRITABILITY
  11. ABILIFY [Suspect]
     Active Substance: ARIPIPRAZOLE
     Indication: PSYCHOTIC DISORDER
  12. ABILIFY [Suspect]
     Active Substance: ARIPIPRAZOLE
     Indication: INSOMNIA
  13. ABILIFY [Suspect]
     Active Substance: ARIPIPRAZOLE
     Indication: BIPOLAR DISORDER
     Dosage: 30 MG, QD
     Route: 065
     Dates: start: 2003, end: 2013

REACTIONS (19)
  - Blood cholesterol increased [Unknown]
  - Gambling disorder [Recovered/Resolved]
  - Blood triglycerides increased [Unknown]
  - Hyperhidrosis [Unknown]
  - Economic problem [Unknown]
  - Adverse reaction [Unknown]
  - Back pain [Unknown]
  - Blood alkaline phosphatase increased [Unknown]
  - Total cholesterol/HDL ratio increased [Unknown]
  - Compulsive shopping [Recovered/Resolved]
  - Product use in unapproved indication [Unknown]
  - High density lipoprotein decreased [Unknown]
  - Constipation [Unknown]
  - Insomnia [Unknown]
  - Mental disorder [Unknown]
  - Suicide attempt [Recovered/Resolved]
  - Suicidal ideation [Recovered/Resolved]
  - Blood urea nitrogen/creatinine ratio decreased [Unknown]
  - Obsessive-compulsive disorder [Unknown]
